FAERS Safety Report 8344851-X (Version None)
Quarter: 2012Q2

REPORT INFORMATION
  Report Type: 
  Country: None (occurrence: None)
  Receive Date: 20120508
  Receipt Date: 20120503
  Transmission Date: 20120825
  Serious: Yes (Hospitalization)
  Sender: FDA-Public Use
  Company Number: US-GLAXOSMITHKLINE-A0976272A

PATIENT
  Sex: Male

DRUGS (9)
  1. VITAMIN B COMPLEX CAP [Concomitant]
  2. PLAVIX [Concomitant]
  3. PRILOSEC [Concomitant]
  4. ADVAIR DISKUS 100/50 [Suspect]
     Indication: ASTHMA
     Route: 055
  5. AVAPRO [Concomitant]
  6. AMLODIPINE [Concomitant]
  7. TRAMADOL HYDROCHLORIDE [Concomitant]
  8. PROAIR HFA [Concomitant]
  9. METOPROLOL TARTRATE [Concomitant]

REACTIONS (2)
  - ASTHENIA [None]
  - ADDISON'S DISEASE [None]
